FAERS Safety Report 15348491 (Version 1)
Quarter: 2018Q3

REPORT INFORMATION
  Report Type: Spontaneous
  Country: CH (occurrence: CH)
  Receive Date: 20180904
  Receipt Date: 20180904
  Transmission Date: 20181010
  Serious: Yes (Hospitalization)
  Sender: FDA-Public Use
  Company Number: CH-BAYER-2018-162572

PATIENT
  Age: 70 Year
  Sex: Male

DRUGS (3)
  1. ASPIRIN CARDIO 100 MG [Suspect]
     Active Substance: ASPIRIN
     Dosage: 100 MG, UNK
     Route: 048
     Dates: end: 20180704
  2. INEGY [Concomitant]
     Active Substance: EZETIMIBE\SIMVASTATIN
     Dosage: 10/20 MG/DAY, DOSE NOT KNOWN
     Route: 048
     Dates: end: 20180704
  3. METFORMIN [Concomitant]
     Active Substance: METFORMIN HYDROCHLORIDE
     Dosage: 1000 MG, UNK
     Route: 048
     Dates: end: 20180704

REACTIONS (4)
  - Cerebral haemorrhage [Recovering/Resolving]
  - Epilepsy [Recovering/Resolving]
  - Aphasia [Recovering/Resolving]
  - Asthenia [Recovering/Resolving]

NARRATIVE: CASE EVENT DATE: 20180704
